FAERS Safety Report 4960541-5 (Version None)
Quarter: 2006Q1

REPORT INFORMATION
  Report Type: 
  Country: None (occurrence: None)
  Receive Date: 20060329
  Receipt Date: 20060317
  Transmission Date: 20060701
  Serious: Yes (Hospitalization)
  Sender: FDA-Public Use
  Company Number: GB-2006-004289

PATIENT
  Age: 29 Year
  Sex: Female

DRUGS (1)
  1. MIRENA [Suspect]
     Dosage: 20 UG/DAY, INTRA-UTERINE
     Route: 015
     Dates: start: 20030101

REACTIONS (6)
  - ABDOMINAL PAIN LOWER [None]
  - DERMOID CYST OF OVARY [None]
  - DYSPAREUNIA [None]
  - HAEMORRHAGIC OVARIAN CYST [None]
  - MALAISE [None]
  - PELVIC PAIN [None]
